FAERS Safety Report 25171188 (Version 1)
Quarter: 2025Q2

REPORT INFORMATION
  Report Type: Spontaneous
  Country: US (occurrence: US)
  Receive Date: 20250408
  Receipt Date: 20250408
  Transmission Date: 20250716
  Serious: Yes (Hospitalization, Other)
  Sender: ORGANON
  Company Number: US-MLMSERVICE-20170803-0833099-1

PATIENT
  Age: 61 Year
  Sex: Female

DRUGS (8)
  1. NASONEX [Interacting]
     Active Substance: MOMETASONE FUROATE
     Indication: Chronic obstructive pulmonary disease
     Dosage: 50 MICROGRAM, QD
     Route: 045
  2. NASONEX [Interacting]
     Active Substance: MOMETASONE FUROATE
     Indication: Chronic sinusitis
  3. VORICONAZOLE [Interacting]
     Active Substance: VORICONAZOLE
     Indication: Pneumonia staphylococcal
     Dosage: 200 MG, BID (4.5 MG/KG FOR 5 MONTHS)
     Route: 048
  4. VORICONAZOLE [Interacting]
     Active Substance: VORICONAZOLE
     Dosage: 100 MG, BID (2.2 MG/KG)
     Route: 048
  5. FLUTICASONE PROPIONATE\SALMETEROL XINAFOATE [Interacting]
     Active Substance: FLUTICASONE PROPIONATE\SALMETEROL XINAFOATE
     Indication: Chronic sinusitis
     Dosage: FLUTICASONE 500 MCG/SALMETEROL 50 MCG, TWICE DAILY
     Route: 055
  6. FLUTICASONE PROPIONATE\SALMETEROL XINAFOATE [Interacting]
     Active Substance: FLUTICASONE PROPIONATE\SALMETEROL XINAFOATE
     Indication: Chronic obstructive pulmonary disease
  7. ESOMEPRAZOLE [Concomitant]
     Active Substance: ESOMEPRAZOLE
     Dosage: 40 MG, QD
     Route: 048
  8. TIOTROPIUM BROMIDE [Concomitant]
     Active Substance: TIOTROPIUM BROMIDE
     Dosage: 18 MICROGRAM, QD
     Route: 055

REACTIONS (3)
  - Cushing^s syndrome [Recovering/Resolving]
  - Adrenal insufficiency [Recovering/Resolving]
  - Drug interaction [Recovering/Resolving]
